FAERS Safety Report 7084030-X (Version None)
Quarter: 2010Q4

REPORT INFORMATION
  Report Type: 
  Country: None (occurrence: None)
  Receive Date: 20101104
  Receipt Date: 20100916
  Transmission Date: 20110411
  Serious: Yes (Death)
  Sender: FDA-Public Use
  Company Number: VE-PFIZER INC-2010139798

PATIENT
  Age: 74 Year
  Sex: Male

DRUGS (2)
  1. LIPITOR [Suspect]
     Indication: HYPERCHOLESTEROLAEMIA
     Dosage: 80 MG, 2X/DAY
     Route: 048
  2. LIPITOR [Suspect]
     Indication: HYPERTRIGLYCERIDAEMIA

REACTIONS (1)
  - DEATH [None]
